FAERS Safety Report 8026221-7 (Version None)
Quarter: 2012Q1

REPORT INFORMATION
  Report Type: 
  Country: None (occurrence: None)
  Receive Date: 20120105
  Receipt Date: 20110224
  Transmission Date: 20120608
  Serious: No
  Sender: FDA-Public Use
  Company Number: US-ABBOTT-11P-163-0707898-00

PATIENT
  Sex: Male
  Weight: 124.85 kg

DRUGS (2)
  1. SYNTHROID [Suspect]
     Route: 048
     Dates: start: 20110201
  2. SYNTHROID [Suspect]
     Indication: HYPOTHYROIDISM
     Route: 048
     Dates: start: 20100701, end: 20110201

REACTIONS (1)
  - PRURITUS [None]
